FAERS Safety Report 7274867-6 (Version None)
Quarter: 2011Q1

REPORT INFORMATION
  Report Type: 
  Country: None (occurrence: None)
  Receive Date: 20110204
  Receipt Date: 20110124
  Transmission Date: 20110831
  Serious: Yes (Other)
  Sender: FDA-Public Use
  Company Number: GR-JNJFOC-20101105513

PATIENT
  Age: 43 Year
  Sex: Female

DRUGS (4)
  1. REMICADE [Suspect]
     Indication: PSORIASIS
     Dosage: 3 DOSES ON UNSPECIFIED DATES
     Route: 042
  2. REMICADE [Suspect]
     Dosage: 4TH DOSE
     Route: 042
  3. FENISTIL [Concomitant]
     Indication: PREMEDICATION
  4. SOLU-CORTEF [Concomitant]
     Indication: PREMEDICATION
     Route: 042

REACTIONS (5)
  - RESPIRATORY DISTRESS [None]
  - INFUSION RELATED REACTION [None]
  - PYREXIA [None]
  - ERYTHEMA [None]
  - RASH [None]
